FAERS Safety Report 4510428-7 (Version None)
Quarter: 2004Q4

REPORT INFORMATION
  Report Type: 
  Country: None (occurrence: None)
  Receive Date: 20041122
  Receipt Date: 20040930
  Transmission Date: 20050328
  Serious: Yes (Hospitalization)
  Sender: FDA-Public Use
  Company Number: 800125

PATIENT
  Age: 58 Year
  Sex: Male
  Weight: 82.5547 kg

DRUGS (24)
  1. DIANEAL [Suspect]
     Indication: PERITONEAL DIALYSIS
     Dosage: 14 L;QD; INTRAPERITONEAL
     Route: 033
     Dates: start: 20030301
  2. NEPHROCAPS [Concomitant]
  3. CYSTAGON ^MYLAN^ [Concomitant]
  4. ASPIRIN [Concomitant]
  5. MECLIZINE [Concomitant]
     Indication: PERITONEAL DIALYSIS
     Dosage: 14 L; QD; INTRAPERITONEAL
     Route: 033
     Dates: start: 20030301
  6. NEPHROCAPS [Concomitant]
  7. CYSTAGON ^MYLAN^ [Concomitant]
  8. ASPIRIN [Concomitant]
  9. MECLIZINE [Concomitant]
  10. ATENOLOL [Concomitant]
  11. MARINOL [Concomitant]
  12. ULTRACET [Concomitant]
  13. TUMBS [Concomitant]
  14. INSULIN BASAL [Concomitant]
  15. INSULIN HUMULUS [Concomitant]
  16. PHENYTOIN [Concomitant]
  17. IRON SULFATETHIAMIN COMPOUND TAB [Concomitant]
  18. VICODIN [Concomitant]
  19. LOPERAMIDE HCL [Concomitant]
  20. ARANESP [Concomitant]
  21. CARBAMAZEPINE [Concomitant]
  22. PREVACHOL [Concomitant]
  23. SENOKOT [Concomitant]
  24. NIFEREX [Concomitant]

REACTIONS (9)
  - CATHETER RELATED COMPLICATION [None]
  - CATHETER RELATED INFECTION [None]
  - CONDITION AGGRAVATED [None]
  - DEVICE FAILURE [None]
  - DIARRHOEA [None]
  - DISEASE RECURRENCE [None]
  - PERITONITIS BACTERIAL [None]
  - STAPHYLOCOCCAL INFECTION [None]
  - URINARY TRACT INFECTION [None]
